FAERS Safety Report 9625535 (Version 3)
Quarter: 2013Q4

REPORT INFORMATION
  Report Type: Report from Study
  Country: BR (occurrence: BR)
  Receive Date: 20131016
  Receipt Date: 20131217
  Transmission Date: 20140711
  Serious: Yes (Hospitalization, Other)
  Sender: FDA-Public Use
  Company Number: PHHY2013BR115513

PATIENT
  Age: 63 Year
  Sex: Female
  Weight: 91 kg

DRUGS (3)
  1. TRILEPTAL [Suspect]
     Indication: EPILEPSY
     Dosage: 2 DF DAILY
     Route: 048
  2. LAMITOR [Concomitant]
     Indication: CONVULSION
     Dosage: 3 DF DAIL
     Route: 048
  3. URBANIL [Concomitant]
     Indication: ANXIETY
     Dosage: 2 DF DAILY
     Route: 048

REACTIONS (4)
  - Nosocomial infection [Recovered/Resolved]
  - Venous occlusion [Recovering/Resolving]
  - Pulmonary hypertension [Recovering/Resolving]
  - Convulsion [Recovered/Resolved]
